FAERS Safety Report 7376017-4 (Version None)
Quarter: 2011Q1

REPORT INFORMATION
  Report Type: 
  Country: None (occurrence: None)
  Receive Date: 20110325
  Receipt Date: 20110228
  Transmission Date: 20110831
  Serious: Yes (Hospitalization, Other)
  Sender: FDA-Public Use
  Company Number: US-BAYER-201025499NA

PATIENT
  Sex: Female

DRUGS (4)
  1. NSAID'S [Concomitant]
  2. TRAMADOL [Concomitant]
  3. YAZ [Suspect]
     Indication: PREMENSTRUAL SYNDROME
     Dosage: UNK
     Dates: start: 20070806, end: 20091015
  4. PROZAC [Concomitant]
     Dosage: UNK
     Dates: start: 20060101

REACTIONS (5)
  - BILIARY DYSKINESIA [None]
  - GALLBLADDER INJURY [None]
  - PAIN [None]
  - ABDOMINAL PAIN UPPER [None]
  - CHOLELITHIASIS [None]
